FAERS Safety Report 21302843 (Version 1)
Quarter: 2022Q3

REPORT INFORMATION
  Report Type: Spontaneous
  Country: US (occurrence: None)
  Receive Date: 20220907
  Receipt Date: 20220907
  Transmission Date: 20221027
  Serious: Yes (Death)
  Sender: FDA-Public Use
  Company Number: None

PATIENT
  Sex: Female

DRUGS (4)
  1. DIMETHYL FUMARATE [Suspect]
     Active Substance: DIMETHYL FUMARATE
     Indication: Multiple sclerosis
     Dosage: FREQUENCY : TWICE A WEEK;?
     Route: 048
     Dates: start: 20210730, end: 202208
  2. DIMETHYL FUMARATE [Suspect]
     Active Substance: DIMETHYL FUMARATE
     Dosage: FREQUENCY : TWICE A WEEK;?
     Route: 048
  3. VITAMINS [Concomitant]
     Active Substance: VITAMINS
  4. MINERALS [Concomitant]
     Active Substance: MINERALS

REACTIONS (1)
  - Death [None]
